FAERS Safety Report 6565611-6 (Version None)
Quarter: 2010Q1

REPORT INFORMATION
  Report Type: 
  Country: None (occurrence: None)
  Receive Date: 20100201
  Receipt Date: 20100128
  Transmission Date: 20100710
  Serious: Yes (Hospitalization, Other)
  Sender: FDA-Public Use
  Company Number: AU-RB-001403-10

PATIENT
  Age: 99 Year
  Sex: Male

DRUGS (1)
  1. NORSPAN  NOS [Suspect]
     Indication: DRUG USE FOR UNKNOWN INDICATION
     Dosage: 30 MCG/HR
     Route: 062

REACTIONS (1)
  - HALLUCINATION, VISUAL [None]
